FAERS Safety Report 8739689 (Version 4)
Quarter: 2013Q2

REPORT INFORMATION
  Report Type: Report from Study
  Country: US (occurrence: US)
  Receive Date: 20120823
  Receipt Date: 20130507
  Transmission Date: 20140414
  Serious: Yes (Hospitalization)
  Sender: FDA-Public Use
  Company Number: US-ROCHE-GNE306948

PATIENT
  Age: 23 Year
  Sex: Female
  Weight: 76.27 kg

DRUGS (16)
  1. OMALIZUMAB [Suspect]
     Indication: ASTHMA
     Route: 058
     Dates: start: 201006, end: 20111027
  2. OMALIZUMAB [Suspect]
     Route: 058
     Dates: start: 20071027, end: 20120202
  3. INSULIN [Concomitant]
     Indication: TYPE 2 DIABETES MELLITUS
     Dosage: UNK
     Route: 065
  4. AMOXICILLIN [Concomitant]
     Indication: EAR INFECTION
  5. PULMICORT [Concomitant]
     Indication: ASTHMA
  6. ALBUTEROL NEBULIZER [Concomitant]
     Indication: ASTHMA
  7. BUDESONIDE [Concomitant]
     Indication: ASTHMA
  8. POLY VI SOL [Concomitant]
  9. SALINE NASAL DROPS [Concomitant]
     Indication: NASAL CONGESTION
  10. BACTRIM [Concomitant]
  11. PREDNISONE [Concomitant]
     Indication: ASTHMA
  12. PREDNISONE [Concomitant]
     Indication: PULMONARY EMBOLISM
  13. METFORMIN [Concomitant]
     Indication: TYPE 2 DIABETES MELLITUS
  14. COLACE [Concomitant]
     Route: 048
     Dates: start: 20110202
  15. SINGULAIR [Concomitant]
     Route: 048
     Dates: start: 20110202, end: 20110204
  16. ADVAIR [Concomitant]
     Route: 065
     Dates: start: 20110202, end: 20110204

REACTIONS (8)
  - Abdominal pain [Recovered/Resolved]
  - Exposure during pregnancy [Unknown]
  - Type 2 diabetes mellitus [Recovered/Resolved]
  - Bronchiolitis [Unknown]
  - Ear infection [Unknown]
  - Wheezing [Unknown]
  - Nasal congestion [Unknown]
  - Pulmonary embolism [Not Recovered/Not Resolved]
